FAERS Safety Report 9580749 (Version 1)
Quarter: 2013Q4

REPORT INFORMATION
  Report Type: Report from Study
  Country: CA (occurrence: CA)
  Receive Date: 20131002
  Receipt Date: 20131002
  Transmission Date: 20140711
  Serious: Yes (Hospitalization)
  Sender: FDA-Public Use
  Company Number: CA-JNJFOC-20130916611

PATIENT
  Age: 72 Year
  Sex: Male
  Weight: 84.2 kg

DRUGS (7)
  1. REMICADE [Suspect]
     Indication: COLITIS ULCERATIVE
     Route: 042
     Dates: start: 20120424
  2. CRESTOR [Concomitant]
     Route: 065
  3. RAMIPRIL [Concomitant]
     Route: 065
  4. ASA [Concomitant]
     Route: 065
  5. NEXIUM [Concomitant]
     Route: 065
  6. METOPROLOL [Concomitant]
     Route: 065
  7. MEZAVANT [Concomitant]
     Route: 065

REACTIONS (2)
  - Thrombosis [Recovering/Resolving]
  - Heart rate decreased [Recovering/Resolving]
